FAERS Safety Report 14116266 (Version 2)
Quarter: 2017Q4

REPORT INFORMATION
  Report Type: Report from Study
  Country: IT (occurrence: IT)
  Receive Date: 20171023
  Receipt Date: 20171027
  Transmission Date: 20180321
  Serious: Yes (Death, Hospitalization)
  Sender: FDA-Public Use
  Company Number: IT-PFIZER INC-2017453981

PATIENT
  Age: 60 Year
  Sex: Female
  Weight: 62 kg

DRUGS (4)
  1. DAUNORUBICIN HCL [Suspect]
     Active Substance: DAUNORUBICIN HYDROCHLORIDE
     Indication: ACUTE MYELOID LEUKAEMIA
     Dosage: 80 UNK, UNK
     Route: 042
     Dates: start: 20070618, end: 20070622
  2. VEPESID [Suspect]
     Active Substance: ETOPOSIDE
     Indication: ACUTE MYELOID LEUKAEMIA
     Dosage: 80 UNK, UNK
     Route: 042
     Dates: start: 20070618, end: 20070622
  3. ARACYTIN [Suspect]
     Active Substance: CYTARABINE
     Dosage: 160 UNK, UNK
     Route: 042
     Dates: start: 20070618, end: 20070627
  4. ALDESLEUKIN [Suspect]
     Active Substance: ALDESLEUKIN
     Indication: ACUTE MYELOID LEUKAEMIA
     Dosage: UNK

REACTIONS (13)
  - Cerebellar haemorrhage [Unknown]
  - Bone marrow failure [Unknown]
  - Oxygen saturation decreased [Unknown]
  - Cardiac arrest [Unknown]
  - General physical health deterioration [Unknown]
  - Sepsis [Fatal]
  - Haemothorax [Unknown]
  - Respiratory failure [Unknown]
  - Neutropenia [Unknown]
  - Escherichia infection [Fatal]
  - Haemoptysis [Unknown]
  - Enterococcal infection [Unknown]
  - Pyrexia [Unknown]

NARRATIVE: CASE EVENT DATE: 20070620
